FAERS Safety Report 4471948-7 (Version None)
Quarter: 2004Q4

REPORT INFORMATION
  Report Type: 
  Country: None (occurrence: None)
  Receive Date: 20041007
  Receipt Date: 20040922
  Transmission Date: 20050328
  Serious: Yes (Hospitalization)
  Sender: FDA-Public Use
  Company Number: 2004-0007537

PATIENT
  Age: 25 Year
  Sex: Female

DRUGS (2)
  1. VIREAD [Suspect]
     Indication: HIV INFECTION
     Dosage: 300 MG, 1 IN 1 D, ORAL
     Route: 048
     Dates: start: 20040901, end: 20040901
  2. KALETRA [Suspect]
     Indication: HIV INFECTION
     Dates: start: 20040901, end: 20040901

REACTIONS (3)
  - DRUG EXPOSURE DURING PREGNANCY [None]
  - MITOCHONDRIAL TOXICITY [None]
  - TRANSAMINASES INCREASED [None]
